FAERS Safety Report 19659825 (Version 4)
Quarter: 2021Q3

REPORT INFORMATION
  Report Type: Report from Study
  Country: US (occurrence: US)
  Receive Date: 20210805
  Receipt Date: 20210826
  Transmission Date: 20211014
  Serious: No
  Sender: FDA-Public Use
  Company Number: NVSC2021US169420

PATIENT
  Sex: Male

DRUGS (1)
  1. KESIMPTA [Suspect]
     Active Substance: OFATUMUMAB
     Indication: MULTIPLE SCLEROSIS
     Dosage: 20 MG, QW
     Route: 065

REACTIONS (8)
  - Migraine [Unknown]
  - Dizziness [Unknown]
  - Abdominal discomfort [Unknown]
  - Gait inability [Unknown]
  - Injection site pain [Unknown]
  - Fatigue [Unknown]
  - Feeding disorder [Unknown]
  - Nausea [Unknown]
